FAERS Safety Report 14942118 (Version 1)
Quarter: 2018Q2

REPORT INFORMATION
  Report Type: Spontaneous
  Country: FR (occurrence: FR)
  Receive Date: 20180528
  Receipt Date: 20180528
  Transmission Date: 20180711
  Serious: Yes (Other)
  Sender: FDA-Public Use
  Company Number: FR-MERCK KGAA-2048502

PATIENT
  Age: 76 Year
  Sex: Female

DRUGS (5)
  1. DAFALGAN [Concomitant]
     Active Substance: ACETAMINOPHEN
  2. DOLIPRANE [Concomitant]
     Active Substance: ACETAMINOPHEN
  3. NOVOTHYROX [Suspect]
     Active Substance: LEVOTHYROXINE SODIUM
     Dates: start: 201708, end: 201801
  4. NOVOTHYROX [Suspect]
     Active Substance: LEVOTHYROXINE SODIUM
     Indication: HYPOTHYROIDISM
     Dates: start: 2017
  5. BROMAZEPAM [Concomitant]
     Active Substance: BROMAZEPAM

REACTIONS (16)
  - Nausea [None]
  - Pollakiuria [Recovering/Resolving]
  - Weight increased [None]
  - Intestinal obstruction [None]
  - Constipation [Recovering/Resolving]
  - Blood calcium increased [None]
  - Abdominal pain upper [Recovering/Resolving]
  - Pain in extremity [Recovering/Resolving]
  - Hot flush [Recovering/Resolving]
  - Asthma [None]
  - Insomnia [Recovering/Resolving]
  - Bone pain [Recovering/Resolving]
  - Blood pressure increased [Recovered/Resolved]
  - Heart rate increased [Recovering/Resolving]
  - Bladder pain [Recovering/Resolving]
  - Palpitations [Recovering/Resolving]

NARRATIVE: CASE EVENT DATE: 2017
